FAERS Safety Report 4461484-6 (Version None)
Quarter: 2004Q3

REPORT INFORMATION
  Report Type: 
  Country: None (occurrence: None)
  Receive Date: 20040916
  Receipt Date: 20040903
  Transmission Date: 20050211
  Serious: No
  Sender: FDA-Public Use
  Company Number: STAR-009-S01USA

PATIENT
  Age: 33 Year
  Sex: Male
  Weight: 108.8633 kg

DRUGS (1)
  1. CARTICEL [Suspect]
     Indication: ARTHROPATHY
     Dosage: 1 NA ONCE IS
     Route: 035
     Dates: start: 20010321, end: 20010321

REACTIONS (5)
  - ARTHRALGIA [None]
  - CHONDROSIS [None]
  - GRAFT COMPLICATION [None]
  - JOINT CREPITATION [None]
  - JOINT EFFUSION [None]
